FAERS Safety Report 4267672-6 (Version None)
Quarter: 2004Q1

REPORT INFORMATION
  Report Type: 
  Country: None (occurrence: None)
  Receive Date: 20040109
  Receipt Date: 20040105
  Transmission Date: 20041129
  Serious: Yes (Other)
  Sender: FDA-Public Use
  Company Number: PHBS2004CH00467

PATIENT
  Age: 5 Month
  Sex: Male

DRUGS (17)
  1. SANDIMMUNE [Suspect]
     Indication: LIVER TRANSPLANT
     Dosage: 102 MG IN 21 HOURS
     Dates: start: 20031106, end: 20031106
  2. ROCEPHIN [Concomitant]
     Dosage: 265 MG/D
     Route: 042
     Dates: start: 20031105, end: 20031107
  3. FLAGYL [Concomitant]
     Dosage: 159 MG/D
     Route: 042
     Dates: start: 20031105, end: 20031107
  4. LASIX [Concomitant]
     Dosage: 12.7 MG/D
     Route: 042
     Dates: start: 20031105, end: 20031110
  5. ANTRA [Concomitant]
     Dosage: 10 MG/D
     Route: 042
     Dates: start: 20031028, end: 20031201
  6. SIMULECT [Concomitant]
     Dosage: 10 MG/D
     Route: 042
     Dates: start: 20031105, end: 20031110
  7. CELLCEPT [Concomitant]
     Dosage: 200 MG/D
     Route: 042
     Dates: start: 20031104
  8. SOLU-MEDROL [Concomitant]
     Dosage: 10 MG/D
     Route: 042
     Dates: start: 20031105, end: 20031127
  9. PROSTINE [Concomitant]
     Dosage: 10 UG/D
     Route: 042
     Dates: start: 20031105, end: 20031110
  10. HEPARIN [Concomitant]
     Dosage: 1908 IU/D
     Route: 042
     Dates: start: 20031105, end: 20031110
  11. CYMEVENE [Concomitant]
     Dosage: 26 MG/D
     Route: 042
     Dates: start: 20031105
  12. BACTRIM [Concomitant]
     Dosage: 30 MG/D
     Dates: start: 20031107, end: 20031109
  13. KONAKION [Concomitant]
     Dosage: 5 MG/D
  14. SINTENYL [Concomitant]
     Dosage: 2-3 MCG/KG/H
  15. DORMICUM ROCHE [Concomitant]
     Dosage: 2-3 MCG/KG/H
  16. DOPAMINE HCL [Concomitant]
     Dosage: 2.5-7.5 MCG/KG/H
  17. FRESH FROZEN PLASMA [Concomitant]
     Dosage: 20 ML/KG/D
     Dates: start: 20031105, end: 20031105

REACTIONS (4)
  - CONDITION AGGRAVATED [None]
  - MEDICATION ERROR [None]
  - OVERDOSE [None]
  - RENAL FAILURE ACUTE [None]
